FAERS Safety Report 7683928 (Version 8)
Quarter: 2013Q2

REPORT INFORMATION
  Report Type: Report from Study
  Country: US (occurrence: US)
  Receive Date: 20101126
  Receipt Date: 20130613
  Transmission Date: 20140414
  Serious: Yes (Life-Threatening, Hospitalization, Other)
  Sender: FDA-Public Use
  Company Number: PHHO2010US17490

PATIENT
  Age: 58 Year
  Sex: Female
  Weight: 68.27 kg

DRUGS (9)
  1. AFINITOR [Suspect]
     Indication: CLEAR CELL RENAL CELL CARCINOMA
     Dosage: 35MG/WEEK
     Route: 048
     Dates: start: 20100916, end: 20101110
  2. SORAFENIB [Suspect]
     Indication: CLEAR CELL RENAL CELL CARCINOMA
     Dosage: 400 MG, QD
     Route: 048
     Dates: start: 20100916, end: 20101110
  3. LOVENOX [Suspect]
  4. GLYBURIDE [Concomitant]
  5. SAXAGLIPTIN [Concomitant]
  6. HYDROCHLOROTHIAZIDE [Concomitant]
  7. HYDROCODONE [Concomitant]
  8. ALENDRONIC ACID [Concomitant]
  9. LIPITOR [Concomitant]

REACTIONS (19)
  - Bradycardia [Recovering/Resolving]
  - Respiratory failure [Recovering/Resolving]
  - Shock [Recovered/Resolved]
  - Cardiac arrest [Recovered/Resolved with Sequelae]
  - Nausea [Recovering/Resolving]
  - Dizziness [Recovering/Resolving]
  - Abdominal pain [Recovering/Resolving]
  - Mental status changes [Recovering/Resolving]
  - Hypotension [Recovering/Resolving]
  - Diarrhoea [Recovered/Resolved]
  - Hypophosphataemia [Recovering/Resolving]
  - Peritoneal haemorrhage [Recovering/Resolving]
  - Haematoma [Recovering/Resolving]
  - Sepsis [Recovered/Resolved]
  - Adrenal insufficiency [Recovering/Resolving]
  - Pneumonia [Recovering/Resolving]
  - Lung infiltration [Recovering/Resolving]
  - Pleural effusion [Recovering/Resolving]
  - Lymphadenopathy [Recovering/Resolving]
